FAERS Safety Report 5039052-7 (Version None)
Quarter: 2006Q2

REPORT INFORMATION
  Report Type: 
  Country: None (occurrence: None)
  Receive Date: 20060627
  Receipt Date: 20060627
  Transmission Date: 20061013
  Serious: Yes (Other)
  Sender: FDA-Public Use
  Company Number: None

PATIENT
  Age: 59 Year
  Sex: Female
  Weight: 83.9154 kg

DRUGS (9)
  1. LIPITOR [Suspect]
     Indication: BLOOD CHOLESTEROL INCREASED
     Dosage: 10 MG TAB 1 DAILY PO
     Route: 048
     Dates: start: 20060418, end: 20060524
  2. LIPITOR [Suspect]
     Indication: BLOOD TRIGLYCERIDES INCREASED
     Dosage: 10 MG TAB 1 DAILY PO
     Route: 048
     Dates: start: 20060418, end: 20060524
  3. LIPITOR [Suspect]
     Indication: LOW DENSITY LIPOPROTEIN INCREASED
     Dosage: 10 MG TAB 1 DAILY PO
     Route: 048
     Dates: start: 20060418, end: 20060524
  4. LEVOXYL [Concomitant]
  5. DIAZEPAM [Concomitant]
  6. NASONEX [Concomitant]
  7. ZYRTEC [Concomitant]
  8. PROPOXYPHENE HCL AND ACETAMINOPHEN [Concomitant]
  9. ALBUTEROL SPIROS [Concomitant]

REACTIONS (18)
  - ABDOMINAL PAIN UPPER [None]
  - ANGER [None]
  - ASTHENIA [None]
  - BURNING SENSATION [None]
  - CONSTIPATION [None]
  - DEPRESSION [None]
  - DRUG DOSE OMISSION [None]
  - DYSPEPSIA [None]
  - DYSPNOEA EXERTIONAL [None]
  - FATIGUE [None]
  - INSOMNIA [None]
  - MEMORY IMPAIRMENT [None]
  - MUSCLE TWITCHING [None]
  - MYALGIA [None]
  - NAUSEA [None]
  - PANIC ATTACK [None]
  - PARAESTHESIA [None]
  - RESTLESS LEGS SYNDROME [None]
